FAERS Safety Report 24722852 (Version 2)
Quarter: 2024Q4

REPORT INFORMATION
  Report Type: Spontaneous
  Country: IN (occurrence: IN)
  Receive Date: 20241211
  Receipt Date: 20241212
  Transmission Date: 20250115
  Serious: Yes (Death)
  Sender: NOVARTIS
  Company Number: IN-002147023-NVSC2024IN235922

PATIENT
  Sex: Female

DRUGS (1)
  1. GLIVEC [Suspect]
     Active Substance: IMATINIB MESYLATE
     Indication: Chronic myeloid leukaemia
     Dosage: 300 MG (3X100 MG)
     Route: 065

REACTIONS (1)
  - Death [Fatal]

NARRATIVE: CASE EVENT DATE: 20240501
